FAERS Safety Report 4472356-5 (Version None)
Quarter: 2004Q4

REPORT INFORMATION
  Report Type: 
  Country: None (occurrence: None)
  Receive Date: 20041007
  Receipt Date: 20040924
  Transmission Date: 20050328
  Serious: Yes (Disabling, Other)
  Sender: FDA-Public Use
  Company Number: 2004070397

PATIENT
  Sex: Male

DRUGS (4)
  1. NEURONTIN [Suspect]
     Indication: ANXIETY
  2. NEURONTIN [Suspect]
     Indication: BIPOLAR DISORDER
  3. NEURONTIN [Suspect]
     Indication: DEPRESSION
  4. NEURONTIN [Suspect]
     Indication: OBSESSIVE-COMPULSIVE DISORDER

REACTIONS (5)
  - DEFORMITY [None]
  - DRUG INEFFECTIVE [None]
  - PAIN [None]
  - POLYTRAUMATISM [None]
  - SUICIDE ATTEMPT [None]
